FAERS Safety Report 11918444 (Version 2)
Quarter: 2016Q1

REPORT INFORMATION
  Report Type: Spontaneous
  Country: BR (occurrence: BR)
  Receive Date: 20160115
  Receipt Date: 20160122
  Transmission Date: 20160526
  Serious: Yes (Other)
  Sender: FDA-Public Use
  Company Number: BR-PFIZER INC-2016006277

PATIENT
  Age: 74 Year
  Sex: Female
  Weight: 65 kg

DRUGS (7)
  1. XALATAN [Suspect]
     Active Substance: LATANOPROST
     Indication: CATARACT
     Dosage: ONE DROP EACH EYE, AT NIGHT
     Route: 047
     Dates: start: 2014, end: 201505
  2. SUSTRATE [Concomitant]
     Active Substance: PROPATYL NITRATE
     Indication: CARDIAC DISORDER
     Dosage: 2 TABLETS (UNSPECIFIED DOSE), DAILY
     Dates: start: 2015
  3. XALATAN [Suspect]
     Active Substance: LATANOPROST
     Indication: GLAUCOMA
  4. SIMVASTATIN. [Concomitant]
     Active Substance: SIMVASTATIN
     Indication: BLOOD TRIGLYCERIDES ABNORMAL
  5. EXELON [Concomitant]
     Active Substance: RIVASTIGMINE TARTRATE
     Indication: DEMENTIA ALZHEIMER^S TYPE
     Dosage: 2 TABLETS (UNSPECIFIED DOSE), DAILY
     Dates: start: 2012
  6. SIMVASTATIN. [Concomitant]
     Active Substance: SIMVASTATIN
     Indication: BLOOD CHOLESTEROL ABNORMAL
     Dosage: 1 TABLET (UNSPECIFIED DOSE) AT NIGHT
     Dates: start: 2014
  7. HYDROCHLOROTHIAZIDE. [Concomitant]
     Active Substance: HYDROCHLOROTHIAZIDE
     Indication: BLOOD PRESSURE INCREASED
     Dosage: ONE TABLET (25 MG), DAILY
     Dates: start: 2006

REACTIONS (4)
  - Eye pain [Unknown]
  - Eye disorder [Not Recovered/Not Resolved]
  - Rectal haemorrhage [Recovered/Resolved]
  - Product use issue [Unknown]

NARRATIVE: CASE EVENT DATE: 201509
